FAERS Safety Report 4371684-1 (Version None)
Quarter: 2004Q2

REPORT INFORMATION
  Report Type: 
  Country: None (occurrence: None)
  Receive Date: 20040602
  Receipt Date: 20040521
  Transmission Date: 20050107
  Serious: Yes (Hospitalization)
  Sender: FDA-Public Use
  Company Number: GB-JNJFOC-20040501890

PATIENT
  Age: 50 Year
  Sex: Female

DRUGS (8)
  1. REMICADE [Suspect]
     Indication: RHEUMATOID ARTHRITIS
     Dosage: 255 MG, INTRAVENOUS
     Route: 042
     Dates: start: 20030814, end: 20030925
  2. METHOTREXATE [Concomitant]
  3. AMITRIPTYLINE HCL [Concomitant]
  4. PREDNISOLONE [Concomitant]
  5. SULPHASALAZINE (SULPHASALAZINE) [Concomitant]
  6. ESOMEPRAZOLE (ESOMEPRAZOLE) [Concomitant]
  7. CO-CODAMOL (PANADEINE CO) [Concomitant]
  8. VISCOTEARS (CARBOMER) [Concomitant]

REACTIONS (2)
  - LYMPHADENOPATHY [None]
  - TUBERCULOSIS [None]
